FAERS Safety Report 6667948-9 (Version None)
Quarter: 2010Q2

REPORT INFORMATION
  Report Type: 
  Country: None (occurrence: None)
  Receive Date: 20100405
  Receipt Date: 20100329
  Transmission Date: 20101027
  Serious: Yes (Hospitalization)
  Sender: FDA-Public Use
  Company Number: US-GILEAD-2010-0028170

PATIENT
  Sex: Female
  Weight: 69.1 kg

DRUGS (10)
  1. LETAIRIS [Suspect]
     Indication: PULMONARY ARTERIAL HYPERTENSION
     Route: 048
     Dates: start: 20100203
  2. REVATIO [Concomitant]
  3. INDAPAMIDE [Concomitant]
  4. LISINOPRIL [Concomitant]
  5. CARDIZEM CD [Concomitant]
  6. NEURONTIN [Concomitant]
  7. HYDROXYCHLOR [Concomitant]
  8. AMITRIPTYLINE HCL [Concomitant]
  9. SINGULAIR [Concomitant]
  10. THEOPHYLLINE [Concomitant]

REACTIONS (1)
  - CHRONIC OBSTRUCTIVE PULMONARY DISEASE [None]
